FAERS Safety Report 10233088 (Version 1)
Quarter: 2014Q2

REPORT INFORMATION
  Report Type: Spontaneous
  Country: US (occurrence: US)
  Receive Date: 20140612
  Receipt Date: 20140612
  Transmission Date: 20141212
  Serious: No
  Sender: FDA-Public Use
  Company Number: US-BAYER-2014-084899

PATIENT
  Age: 48 Year
  Sex: Male

DRUGS (1)
  1. ADEMPAS [Suspect]
     Dosage: 1 MG, TID
     Route: 048

REACTIONS (1)
  - Hypotension [None]
